FAERS Safety Report 8457714-6 (Version None)
Quarter: 2012Q2

REPORT INFORMATION
  Report Type: 
  Country: None (occurrence: None)
  Receive Date: 20120618
  Receipt Date: 20120618
  Transmission Date: 20120825
  Serious: Yes (Other)
  Sender: FDA-Public Use
  Company Number: None

PATIENT
  Age: 64 Year
  Sex: Male
  Weight: 95.2554 kg

DRUGS (1)
  1. CEPHALEXIN [Suspect]
     Dosage: 250 MG 4 TIMES A DAY PO
     Route: 048
     Dates: start: 20120611, end: 20120615

REACTIONS (9)
  - HALLUCINATION, VISUAL [None]
  - ARTHRALGIA [None]
  - MUSCLE SPASMS [None]
  - BLOOD PRESSURE FLUCTUATION [None]
  - PARANOIA [None]
  - NIGHTMARE [None]
  - PALPITATIONS [None]
  - DEPRESSION [None]
  - FATIGUE [None]
